FAERS Safety Report 11314479 (Version 1)
Quarter: 2015Q3

REPORT INFORMATION
  Report Type: Spontaneous
  Country: IE (occurrence: IE)
  Receive Date: 20150727
  Receipt Date: 20150727
  Transmission Date: 20151125
  Serious: Yes (Life-Threatening, Hospitalization, Other)
  Sender: FDA-Public Use
  Company Number: IE-GILEAD-2015-0164385

PATIENT
  Age: 61 Year
  Sex: Male

DRUGS (7)
  1. CREON [Concomitant]
     Active Substance: PANCRELIPASE AMYLASE\PANCRELIPASE LIPASE\PANCRELIPASE PROTEASE
     Indication: PANCREATIC INSUFFICIENCY
     Route: 048
  2. THIAMINE. [Concomitant]
     Active Substance: THIAMINE
     Indication: SUPPORTIVE CARE
     Route: 048
  3. HARVONI [Suspect]
     Active Substance: LEDIPASVIR\SOFOSBUVIR
     Indication: HEPATITIS C
     Dosage: 1 DF, QD
     Route: 048
     Dates: start: 201412
  4. GALFER [Concomitant]
     Active Substance: IRON
     Indication: ANAEMIA
     Dosage: 1 DF, BID
     Route: 048
  5. ALDACTONE [Concomitant]
     Active Substance: SPIRONOLACTONE
     Indication: FLUID RETENTION
     Route: 048
  6. RIBAVIRIN. [Concomitant]
     Active Substance: RIBAVIRIN
     Indication: HEPATITIS C
     Route: 048
  7. INDERAL [Concomitant]
     Active Substance: PROPRANOLOL HYDROCHLORIDE
     Indication: PORTAL HYPERTENSION
     Route: 048

REACTIONS (2)
  - Duodenal ulcer [Recovered/Resolved]
  - Duodenal ulcer haemorrhage [Recovered/Resolved]

NARRATIVE: CASE EVENT DATE: 20141231
